FAERS Safety Report 7099187-4 (Version None)
Quarter: 2010Q4

REPORT INFORMATION
  Report Type: 
  Country: None (occurrence: None)
  Receive Date: 20101112
  Receipt Date: 20101103
  Transmission Date: 20110411
  Serious: Yes (Other)
  Sender: FDA-Public Use
  Company Number: US-SANOFI-AVENTIS-2010SA057828

PATIENT
  Sex: Male

DRUGS (4)
  1. LANTUS [Suspect]
     Indication: TYPE 2 DIABETES MELLITUS
     Dosage: DOSE:10 UNIT(S)
     Route: 058
  2. SOLOSTAR [Suspect]
     Indication: TYPE 2 DIABETES MELLITUS
  3. PLAVIX [Suspect]
     Route: 065
  4. ASPIRIN [Suspect]
     Route: 065

REACTIONS (7)
  - BLOOD GLUCOSE DECREASED [None]
  - BLOOD GLUCOSE INCREASED [None]
  - CORONARY ARTERIAL STENT INSERTION [None]
  - CORONARY ARTERY OCCLUSION [None]
  - HYPERHIDROSIS [None]
  - INJECTION SITE HAEMORRHAGE [None]
  - RASH [None]
